FAERS Safety Report 11547931 (Version 1)
Quarter: 2015Q3

REPORT INFORMATION
  Report Type: Spontaneous
  Country: US (occurrence: US)
  Receive Date: 20150903
  Receipt Date: 20150903
  Transmission Date: 20151125
  Serious: No
  Sender: FDA-Public Use
  Company Number: US-ELI_LILLY_AND_COMPANY-US201111003596

PATIENT
  Sex: Female

DRUGS (3)
  1. HUMALOG [Suspect]
     Active Substance: INSULIN LISPRO
     Dosage: 8 U, QD
     Dates: start: 20110930
  2. HUMALOG [Suspect]
     Active Substance: INSULIN LISPRO
     Dosage: 8 U, EACH EVENING
     Dates: start: 20110930
  3. HUMALOG [Suspect]
     Active Substance: INSULIN LISPRO
     Indication: TYPE 2 DIABETES MELLITUS
     Dosage: 10 U, EACH MORNING
     Dates: start: 20110930

REACTIONS (9)
  - Temporomandibular joint syndrome [Unknown]
  - Ear pain [Unknown]
  - Ear infection [Unknown]
  - Paraesthesia [Unknown]
  - Lip swelling [Unknown]
  - Blood glucose increased [Unknown]
  - Fluid retention [Unknown]
  - Oedema peripheral [Unknown]
  - Vision blurred [Unknown]

NARRATIVE: CASE EVENT DATE: 20111018
